FAERS Safety Report 6237648-8 (Version None)
Quarter: 2009Q2

REPORT INFORMATION
  Report Type: 
  Country: None (occurrence: None)
  Receive Date: 20090619
  Receipt Date: 20090612
  Transmission Date: 20091009
  Serious: Yes (Disabling, Other)
  Sender: FDA-Public Use
  Company Number: US-MERCK-0901USA03857

PATIENT
  Age: 62 Year
  Sex: Female
  Weight: 66 kg

DRUGS (1)
  1. FOSAMAX [Suspect]
     Indication: OSTEOPENIA
     Route: 048
     Dates: start: 20010101, end: 20070701

REACTIONS (10)
  - ABSCESS [None]
  - ALVEOLAR OSTEITIS [None]
  - DENTAL FISTULA [None]
  - EAR PAIN [None]
  - EXPOSURE TO COMMUNICABLE DISEASE [None]
  - JAW DISORDER [None]
  - NECK PAIN [None]
  - OSTEOMYELITIS [None]
  - OSTEONECROSIS [None]
  - TOOTHACHE [None]
